FAERS Safety Report 11651653 (Version 1)
Quarter: 2015Q4

REPORT INFORMATION
  Report Type: Spontaneous
  Country: US (occurrence: None)
  Receive Date: 20151021
  Receipt Date: 20151021
  Transmission Date: 20160304
  Serious: Yes (Hospitalization, Disabling)
  Sender: FDA-Public Use
  Company Number: None

PATIENT
  Age: 35 Year
  Sex: Female
  Weight: 134.27 kg

DRUGS (23)
  1. CIPRO [Suspect]
     Active Substance: CIPROFLOXACIN HYDROCHLORIDE
     Indication: PRODUCT USED FOR UNKNOWN INDICATION
  2. PRO-AIR INHALER-ALBUTEROL [Concomitant]
  3. CINNAMO [Concomitant]
  4. PROBIOTIC (PB-8) [Concomitant]
  5. ALLOPURINOL. [Concomitant]
     Active Substance: ALLOPURINOL
  6. CENTRUM COMPLETE?MULTI-VITAMIN [Concomitant]
  7. RED YEAST RICE [Concomitant]
     Active Substance: DIETARY SUPPLEMENT
  8. LANTUS (INSULIN VIAL) [Concomitant]
  9. NASONEX [Concomitant]
     Active Substance: MOMETASONE FUROATE
  10. BENADRYL [Concomitant]
     Active Substance: DIPHENHYDRAMINE HYDROCHLORIDE
  11. OMEGA 3-6-9 FISH, FLAX + BORAGE OIL [Concomitant]
  12. COENZYME Q10 [Concomitant]
     Active Substance: UBIDECARENONE
  13. BLACK COHOSH ROOT [Concomitant]
  14. LEVAQUIN [Suspect]
     Active Substance: LEVOFLOXACIN
  15. DICLOFENAC (ARTHRITIS) [Concomitant]
  16. OMEPRAZOLE. [Concomitant]
     Active Substance: OMEPRAZOLE
  17. VITAMIN D3 [Concomitant]
     Active Substance: CHOLECALCIFEROL
  18. D3 [Concomitant]
     Active Substance: 25-HYDROXYCHOLECALCIFEROL, 5-TRANS-
  19. THYROID ACTIVATOR [Concomitant]
  20. BABY ASPIRI [Concomitant]
  21. VASOTEC (ENALAPRIL) [Concomitant]
  22. VITAMIN B-6 [Concomitant]
     Active Substance: PYRIDOXINE
  23. SUPERB-COMPLEX [Concomitant]

REACTIONS (23)
  - Sciatica [None]
  - Ear discomfort [None]
  - Cerebrospinal fluid leakage [None]
  - Sinusitis [None]
  - B-cell small lymphocytic lymphoma [None]
  - Non-alcoholic steatohepatitis [None]
  - Pneumonia [None]
  - Ear infection [None]
  - Hepatic cirrhosis [None]
  - Muscle contractions involuntary [None]
  - Neuropathy peripheral [None]
  - Intervertebral disc protrusion [None]
  - Tympanic membrane perforation [None]
  - Muscle spasms [None]
  - Drug hypersensitivity [None]
  - Brain oedema [None]
  - Diverticulitis [None]
  - Vein disorder [None]
  - Chronic lymphocytic leukaemia [None]
  - Otorrhoea [None]
  - Hepatosplenomegaly [None]
  - Myositis [None]
  - Large intestine polyp [None]

NARRATIVE: CASE EVENT DATE: 19990201
